FAERS Safety Report 7002744-4 (Version None)
Quarter: 2010Q3

REPORT INFORMATION
  Report Type: 
  Country: None (occurrence: None)
  Receive Date: 20100920
  Receipt Date: 20100701
  Transmission Date: 20110219
  Serious: No
  Sender: FDA-Public Use
  Company Number: US-ASTRAZENECA-2007UW24320

PATIENT
  Age: 21351 Day
  Sex: Female
  Weight: 91.6 kg

DRUGS (10)
  1. SEROQUEL [Suspect]
     Indication: DEPRESSION
     Route: 048
     Dates: start: 20001116
  2. SEROQUEL [Suspect]
     Indication: ANXIETY
     Route: 048
     Dates: start: 20001116
  3. SEROQUEL [Suspect]
     Route: 048
     Dates: start: 20010201
  4. SEROQUEL [Suspect]
     Route: 048
     Dates: start: 20010201
  5. SEROQUEL [Suspect]
     Route: 048
     Dates: start: 20010601, end: 20070501
  6. SEROQUEL [Suspect]
     Route: 048
     Dates: start: 20010601, end: 20070501
  7. SINEQUAN [Concomitant]
     Dates: start: 19970327
  8. EFFEXOR [Concomitant]
     Dosage: 37.5 MG-150 MG
     Dates: start: 20001214
  9. DESYREL [Concomitant]
     Dates: start: 19970605
  10. CITALOPRAM HYDROBROMIDE [Concomitant]

REACTIONS (5)
  - BLOOD CHOLESTEROL INCREASED [None]
  - BLOOD TRIGLYCERIDES INCREASED [None]
  - HYPERLIPIDAEMIA [None]
  - OBESITY [None]
  - TYPE 2 DIABETES MELLITUS [None]
